FAERS Safety Report 17003864 (Version 1)
Quarter: 2019Q4

REPORT INFORMATION
  Report Type: Spontaneous
  Country: CA (occurrence: CA)
  Receive Date: 20191107
  Receipt Date: 20191107
  Transmission Date: 20200122
  Serious: Yes (Hospitalization, Congenital Anomaly, Other)
  Sender: FDA-Public Use
  Company Number: CA-PFIZER INC-2019473320

PATIENT
  Sex: Male

DRUGS (8)
  1. QUETIAPINE. [Suspect]
     Active Substance: QUETIAPINE
     Indication: SLEEP DISORDER
     Dosage: 75 MG, 1X/DAY
     Route: 064
  2. SUBUTEX [Suspect]
     Active Substance: BUPRENORPHINE HYDROCHLORIDE
     Dosage: UNK
     Route: 065
  3. ACETAMINOPHEN. [Suspect]
     Active Substance: ACETAMINOPHEN
     Dosage: UNK
     Route: 064
  4. SUBOXONE [Suspect]
     Active Substance: BUPRENORPHINE HYDROCHLORIDE\NALOXONE HYDROCHLORIDE
     Dosage: UNK
     Route: 063
  5. SUBOXONE [Suspect]
     Active Substance: BUPRENORPHINE HYDROCHLORIDE\NALOXONE HYDROCHLORIDE
     Dosage: 8 MG, UNK
     Route: 064
  6. CONCERTA [Suspect]
     Active Substance: METHYLPHENIDATE HYDROCHLORIDE
     Indication: DISTURBANCE IN ATTENTION
     Dosage: 36 MG, 1X/DAY
     Route: 064
  7. PAROXETINE. [Suspect]
     Active Substance: PAROXETINE
     Indication: ANXIETY
     Dosage: 30 MG, 1X/DAY
     Route: 064
  8. GABAPENTIN. [Suspect]
     Active Substance: GABAPENTIN
     Indication: ANXIETY
     Dosage: 1200 MG, 2X/DAY
     Route: 064

REACTIONS (5)
  - Selective eating disorder [Unknown]
  - Multiple cardiac defects [Unknown]
  - Drug withdrawal syndrome neonatal [Unknown]
  - Foetal exposure during pregnancy [Unknown]
  - Jaundice neonatal [Unknown]
